FAERS Safety Report 10886134 (Version 1)
Quarter: 2015Q1

REPORT INFORMATION
  Report Type: Spontaneous
  Country: PL (occurrence: None)
  Receive Date: 20150302
  Receipt Date: 20150302
  Transmission Date: 20150721
  Serious: Yes (Death, Hospitalization)
  Sender: FDA-Public Use
  Company Number: ABR_02066_2015

PATIENT
  Age: 31 Year
  Sex: Male

DRUGS (3)
  1. HASHISH [Concomitant]
  2. AMPHETAMINE (AMPHETAMINE) [Suspect]
     Active Substance: AMPHETAMINE
     Dosage: 2-CB (1 ^STAMP^ SATURATED WITH 100-120 MCG)
     Dates: end: 201207
  3. METHOXETAMINE [Suspect]
     Active Substance: METHOXETAMINE
     Dosage: DF
     Route: 045
     Dates: end: 201207

REACTIONS (25)
  - Poisoning [None]
  - Hyperthermia [None]
  - Seizure [None]
  - Haemodialysis [None]
  - Multi-organ failure [None]
  - Blood creatinine increased [None]
  - Respiratory failure [None]
  - Pulmonary oedema [None]
  - Rhabdomyolysis [None]
  - Hepatic failure [None]
  - Brain oedema [None]
  - Extravasation [None]
  - Lumbar puncture abnormal [None]
  - Generalised oedema [None]
  - Sinus tachycardia [None]
  - Pleural effusion [None]
  - Bronchopneumonia [None]
  - Cerebral haemorrhage [None]
  - Drug abuse [None]
  - Ultrasound scan abnormal [None]
  - Computerised tomogram abnormal [None]
  - Renal failure [None]
  - Leukocytosis [None]
  - Coma [None]
  - Renal tubular necrosis [None]

NARRATIVE: CASE EVENT DATE: 201207
